FAERS Safety Report 7318604 (Version 2)
Quarter: 2014Q2

REPORT INFORMATION
  Report Type: Spontaneous
  Country: None (occurrence: None)
  Receive Date: 20100218
  Receipt Date: 20140415
  Transmission Date: 20141212
  Serious: Yes (Hospitalization, Other)
  Sender: FDA-Public Use
  Company Number: AUR-APL-2010-00350

PATIENT
  Age: 77 Year
  Sex: Male

DRUGS (1)
  1. CIPROFLOXACIN [Suspect]
     Indication: CHOLANGITIS
     Dosage: 400MG- BID- PARENTERAL
     Route: 051

REACTIONS (6)
  - Syncope [None]
  - Loss of consciousness [None]
  - Tonic clonic movements [None]
  - Ventricular tachycardia [None]
  - Ventricular hypertrophy [None]
  - Torsade de pointes [None]
